FAERS Safety Report 4294849-6 (Version None)
Quarter: 2004Q1

REPORT INFORMATION
  Report Type: 
  Country: None (occurrence: None)
  Receive Date: 20040216
  Receipt Date: 20030123
  Transmission Date: 20041129
  Serious: No
  Sender: FDA-Public Use
  Company Number: US-GLAXOSMITHKLINE-A0393806A

PATIENT
  Age: 26 Year
  Sex: Male

DRUGS (5)
  1. LAMICTAL [Suspect]
     Dosage: 200MG TWICE PER DAY
     Route: 048
     Dates: start: 20021125
  2. RISPERDAL [Concomitant]
  3. WELLBUTRIN [Concomitant]
     Route: 048
  4. CONCERTA [Concomitant]
  5. NEXIUM [Concomitant]

REACTIONS (1)
  - SEMEN VOLUME DECREASED [None]
